FAERS Safety Report 9758629 (Version 1)
Quarter: 2013Q4

REPORT INFORMATION
  Report Type: Spontaneous
  Country: US (occurrence: None)
  Receive Date: 20131216
  Receipt Date: 20131216
  Transmission Date: 20140711
  Serious: Yes (Hospitalization, Other)
  Sender: FDA-Public Use
  Company Number: RB-53214-2013

PATIENT
  Age: 28 Year
  Sex: Male

DRUGS (2)
  1. SUBUTEX 8 MG [Suspect]
     Indication: DRUG DEPENDENCE
     Dosage: (INTRAVENOUS (NOT OTHERWISE SPECIFIED) )
  2. SUBOXONE (8 MG, 8 MG) [Suspect]
     Indication: DRUG DEPENDENCE
     Dosage: (ORAL), (INTRAVENOUS (NOT OTHERWISE SPECIFIED))

REACTIONS (3)
  - Wrong technique in drug usage process [None]
  - Intentional drug misuse [None]
  - Hypersensitivity [None]
